FAERS Safety Report 4965184-5 (Version None)
Quarter: 2006Q1

REPORT INFORMATION
  Report Type: 
  Country: None (occurrence: None)
  Receive Date: 20060201
  Receipt Date: 20051213
  Transmission Date: 20060701
  Serious: No
  Sender: FDA-Public Use
  Company Number: 2005PV005802

PATIENT
  Age: 51 Year
  Sex: Male
  Weight: 114.3065 kg

DRUGS (8)
  1. BYETTA [Suspect]
     Indication: DIABETES MELLITUS NON-INSULIN-DEPENDENT
     Dosage: SEE IMAGE
     Route: 058
     Dates: start: 20051116, end: 20051211
  2. BYETTA [Suspect]
     Indication: DIABETES MELLITUS NON-INSULIN-DEPENDENT
     Dosage: SEE IMAGE
     Route: 058
     Dates: start: 20051212
  3. GLUCOPHAGE [Concomitant]
  4. GLUCOVANCE [Concomitant]
  5. ACTOS [Concomitant]
  6. ATIVAN [Concomitant]
  7. REQUIP [Concomitant]
  8. DARVOCET [Concomitant]

REACTIONS (2)
  - BLOOD GLUCOSE INCREASED [None]
  - WEIGHT DECREASED [None]
